FAERS Safety Report 6587669-0 (Version None)
Quarter: 2010Q1

REPORT INFORMATION
  Report Type: 
  Country: None (occurrence: None)
  Receive Date: 20100204
  Receipt Date: 20100126
  Transmission Date: 20100710
  Serious: Yes (Death)
  Sender: FDA-Public Use
  Company Number: AX255-09-0609

PATIENT
  Age: 77 Year
  Sex: Male
  Weight: 63.91 kg

DRUGS (19)
  1. ABRAXANE [Suspect]
     Indication: NON-SMALL CELL LUNG CANCER
     Dosage: 516 MG
     Dates: start: 20091218
  2. CARBOPLATIN [Suspect]
     Indication: NON-SMALL CELL LUNG CANCER
     Dosage: 750 MG
     Dates: start: 20091218
  3. DEXAMETHASONE TAB [Concomitant]
  4. METOCLOPRAMIDE [Concomitant]
  5. PROCHLORPERAZINE MALEATE [Concomitant]
  6. LANTUS [Concomitant]
  7. LISPRO (INSULIN) [Concomitant]
  8. EZETIMIBE [Concomitant]
  9. RAMIPRIL [Concomitant]
  10. GLIPIZIDE [Concomitant]
  11. LIPITOR [Concomitant]
  12. POTASSIUM (POTASSIUM) [Concomitant]
  13. ESOMEPRAZOLE (ESOMEPERAZOLE) [Concomitant]
  14. FERROUS SULFATE TAB [Concomitant]
  15. MULTIVITAMIN [Concomitant]
  16. ASPIRIN [Concomitant]
  17. ALBUTEROL (SALBUTEROL) [Concomitant]
  18. ACETYLCYSTEINE [Concomitant]
  19. OXYGEN (OXYGEN) [Concomitant]

REACTIONS (13)
  - CHEST PAIN [None]
  - CORNEAL REFLEX DECREASED [None]
  - ERUCTATION [None]
  - FEBRILE NEUTROPENIA [None]
  - HAEMOPTYSIS [None]
  - HYPOTENSION [None]
  - NAUSEA [None]
  - PNEUMONIA [None]
  - PUPILLARY REFLEX IMPAIRED [None]
  - SEPTIC SHOCK [None]
  - TACHYCARDIA [None]
  - UNRESPONSIVE TO STIMULI [None]
  - VOMITING [None]
